FAERS Safety Report 4552121-0 (Version None)
Quarter: 2005Q1

REPORT INFORMATION
  Report Type: 
  Country: None (occurrence: None)
  Receive Date: 20050112
  Receipt Date: 20050106
  Transmission Date: 20050727
  Serious: Yes (Death)
  Sender: FDA-Public Use
  Company Number: MYVW-PR-0412S-0079

PATIENT
  Age: 67 Year
  Sex: Male

DRUGS (4)
  1. MYOVIEW [Suspect]
     Dosage: SEE IMAGE
     Route: 042
     Dates: start: 20041229, end: 20041229
  2. MYOVIEW [Suspect]
     Dosage: SEE IMAGE
     Route: 042
     Dates: start: 20041229, end: 20041229
  3. ADENOSINE [Concomitant]
  4. TECHNETIUM TC 99M GENERATOR [Concomitant]

REACTIONS (4)
  - BLOOD PRESSURE DECREASED [None]
  - CARDIO-RESPIRATORY ARREST [None]
  - DYSPNOEA [None]
  - HEART RATE DECREASED [None]
